FAERS Safety Report 25839154 (Version 1)
Quarter: 2025Q3

REPORT INFORMATION
  Report Type: Spontaneous
  Country: ID (occurrence: ID)
  Receive Date: 20250924
  Receipt Date: 20250924
  Transmission Date: 20251020
  Serious: Yes (Other)
  Sender: BAXTER
  Company Number: ID-MLMSERVICE-20250910-PI642328-00128-1

PATIENT
  Age: 34 Year
  Sex: Female

DRUGS (4)
  1. CYCLOPHOSPHAMIDE [Suspect]
     Active Substance: CYCLOPHOSPHAMIDE
     Indication: Chondrosarcoma
     Dosage: 820 MG, EVERY 2 WK
     Route: 065
  2. DOXORUBICIN [Suspect]
     Active Substance: DOXORUBICIN
     Indication: Chondrosarcoma
     Dosage: 82 MG, EVERY 2 WK
     Route: 065
  3. VINCRISTINE [Suspect]
     Active Substance: VINCRISTINE
     Indication: Chondrosarcoma
     Dosage: 2 MG, EVERY 2 WK
     Route: 065
  4. DACARBAZINE [Suspect]
     Active Substance: DACARBAZINE
     Indication: Chondrosarcoma
     Dosage: 420 MG, EVERY 2 WK
     Route: 065

REACTIONS (4)
  - Cardiac dysfunction [Recovering/Resolving]
  - Cardiomegaly [Recovering/Resolving]
  - Venous oxygen saturation decreased [Recovering/Resolving]
  - Ejection fraction decreased [Recovering/Resolving]
